FAERS Safety Report 7556653-2 (Version None)
Quarter: 2011Q2

REPORT INFORMATION
  Report Type: 
  Country: None (occurrence: None)
  Receive Date: 20110620
  Receipt Date: 20110616
  Transmission Date: 20111010
  Serious: Yes (Other)
  Sender: FDA-Public Use
  Company Number: ES-BRISTOL-MYERS SQUIBB COMPANY-15815996

PATIENT
  Age: 32 Year
  Sex: Male

DRUGS (2)
  1. CLORAZEPATE DIPOTASSIUM [Concomitant]
  2. ABILIFY [Suspect]
     Indication: DELIRIUM
     Dosage: TWO YEARS AGO PREVIOUSLY TOOK 20MG
     Dates: start: 20080401

REACTIONS (1)
  - AZOOSPERMIA [None]
